FAERS Safety Report 11713095 (Version 7)
Quarter: 2017Q1

REPORT INFORMATION
  Report Type: Spontaneous
  Country: US (occurrence: US)
  Receive Date: 20151109
  Receipt Date: 20170118
  Transmission Date: 20170428
  Serious: Yes (Other)
  Sender: FDA-Public Use
  Company Number: PHEH2015US022875

PATIENT
  Sex: Female
  Weight: 72.11 kg

DRUGS (3)
  1. ONDANSETRON DR REDDY [Suspect]
     Active Substance: ONDANSETRON
     Indication: VOMITING IN PREGNANCY
     Dosage: 4 MG
     Route: 048
     Dates: start: 201309, end: 201311
  2. ZOFRAN [Suspect]
     Active Substance: ONDANSETRON HYDROCHLORIDE
     Indication: VOMITING IN PREGNANCY
     Dosage: 1 DF, PRN
     Route: 048
  3. ONDANSETRON HYDROCHLORIDE. [Suspect]
     Active Substance: ONDANSETRON HYDROCHLORIDE
     Indication: PRODUCT USED FOR UNKNOWN INDICATION
     Route: 048

REACTIONS (10)
  - Pelvic pain [Unknown]
  - Ovarian cyst [Unknown]
  - Anxiety [Unknown]
  - Product use issue [Unknown]
  - Maternal exposure during pregnancy [Unknown]
  - Pain [Unknown]
  - Uterine leiomyoma [Unknown]
  - Emotional distress [Unknown]
  - Injury [Unknown]
  - Depression [Unknown]
